FAERS Safety Report 7079507-7 (Version None)
Quarter: 2010Q4

REPORT INFORMATION
  Report Type: 
  Country: None (occurrence: None)
  Receive Date: 20101102
  Receipt Date: 20101019
  Transmission Date: 20110411
  Serious: Yes (Hospitalization)
  Sender: FDA-Public Use
  Company Number: DE-GENENTECH-303680

PATIENT

DRUGS (7)
  1. RITUXIMAB [Suspect]
     Indication: HODGKIN'S DISEASE
     Dosage: 375 MG/M2, UNK
     Route: 042
     Dates: start: 20100513
  2. ADRIAMYCIN PFS [Suspect]
     Indication: HODGKIN'S DISEASE
     Dosage: 25 MG/M2, UNK
     Route: 065
     Dates: start: 20100513
  3. BLEOMYCIN SULFATE [Suspect]
     Indication: HODGKIN'S DISEASE
     Dosage: 10 MG/M2, UNK
     Route: 065
     Dates: start: 20100520
  4. PROCARBAZINE HYDROCHLORIDE [Suspect]
     Indication: HODGKIN'S DISEASE
     Dosage: 100 MG/M2, UNK
     Route: 065
     Dates: start: 20100513
  5. ETOPOSIDE [Suspect]
     Indication: HODGKIN'S DISEASE
     Dosage: 100 MG/M2, UNK
     Route: 065
     Dates: start: 20100513
  6. CYCLOPHOSPHAMIDE [Suspect]
     Indication: HODGKIN'S DISEASE
     Dosage: 650 MG/M2, UNK
     Route: 065
     Dates: start: 20100513
  7. PREDNISONE [Suspect]
     Indication: HODGKIN'S DISEASE
     Dosage: 40 MG/M2, UNK
     Route: 065
     Dates: start: 20100513

REACTIONS (2)
  - PERIPHERAL ARTERIAL OCCLUSIVE DISEASE [None]
  - PERIPHERAL EMBOLISM [None]
